FAERS Safety Report 25731172 (Version 2)
Quarter: 2025Q4

REPORT INFORMATION
  Report Type: Spontaneous
  Country: CA (occurrence: CA)
  Receive Date: 20250827
  Receipt Date: 20251031
  Transmission Date: 20260118
  Serious: Yes (Other)
  Sender: PFIZER
  Company Number: CA-PFIZER INC-PV202500102773

PATIENT
  Age: 32 Year
  Sex: Male
  Weight: 82.5 kg

DRUGS (1)
  1. IXIFI [Suspect]
     Active Substance: INFLIXIMAB-QBTX
     Indication: Colitis ulcerative
     Dosage: 400 MG EVERY 8 WEEKS
     Route: 042
     Dates: start: 20250501

REACTIONS (1)
  - Eye laser surgery [Recovered/Resolved]
